FAERS Safety Report 8103164-1 (Version None)
Quarter: 2012Q1

REPORT INFORMATION
  Report Type: 
  Country: None (occurrence: None)
  Receive Date: 20120201
  Receipt Date: 20120118
  Transmission Date: 20120608
  Serious: Yes (Hospitalization)
  Sender: FDA-Public Use
  Company Number: US-OPTIMER-20120007

PATIENT
  Age: 84 Year
  Sex: Male

DRUGS (17)
  1. DIFICID [Suspect]
     Indication: CLOSTRIDIUM DIFFICILE COLITIS
     Dosage: 200 MG, BID
     Route: 048
     Dates: start: 20120118
  2. INSULIN [Concomitant]
     Dosage: UNK
  3. ASACOL [Concomitant]
     Dosage: UNK
  4. PREVACID [Concomitant]
     Dosage: UNK
  5. ASCORBIC ACID [Concomitant]
     Dosage: UNK
  6. VANCOMYCIN [Concomitant]
     Indication: CLOSTRIDIAL INFECTION
     Dosage: UNK
     Route: 048
     Dates: start: 20111201, end: 20110101
  7. DIGOXIN [Concomitant]
     Dosage: UNK
  8. DIFICID [Suspect]
     Indication: CLOSTRIDIAL INFECTION
     Dosage: 200 MG, BID
     Route: 048
     Dates: start: 20111212, end: 20111222
  9. REMERON [Concomitant]
     Dosage: UNK
  10. FLONASE [Concomitant]
     Dosage: UNK
  11. LOVAZA [Concomitant]
     Dosage: UNK
  12. XANAX [Concomitant]
     Dosage: UNK
  13. ACIDOPHILUS [Concomitant]
     Dosage: UNK
  14. URECHOLINE [Concomitant]
     Dosage: UNK
  15. MULTI-VITAMIN [Concomitant]
     Dosage: UNK
  16. VANCOMYCIN [Concomitant]
     Dosage: UNK
     Route: 042
     Dates: start: 20111201, end: 20110101
  17. IMODIUM [Concomitant]
     Dosage: UNK

REACTIONS (8)
  - CLOSTRIDIUM DIFFICILE COLITIS [None]
  - ASTHENIA [None]
  - FAECES DISCOLOURED [None]
  - DISEASE RECURRENCE [None]
  - NAUSEA [None]
  - VOMITING [None]
  - DIARRHOEA [None]
  - ABDOMINAL PAIN [None]
